FAERS Safety Report 5796093-X (Version None)
Quarter: 2008Q3

REPORT INFORMATION
  Report Type: 
  Country: None (occurrence: None)
  Receive Date: 20080701
  Receipt Date: 20080625
  Transmission Date: 20090109
  Serious: Yes (Hospitalization)
  Sender: FDA-Public Use
  Company Number: FR-BRISTOL-MYERS SQUIBB COMPANY-14202840

PATIENT
  Age: 68 Year
  Sex: Female
  Weight: 100 kg

DRUGS (4)
  1. PRAVADUAL TABS [Suspect]
     Indication: HYPERCHOLESTEROLAEMIA
     Dosage: TREATED FOR 5-6 MONTHS. 1DF=1TABLET
     Route: 048
     Dates: start: 20080125, end: 20080404
  2. LOSARTAN POTASSIUM AND HYDROCHLOROTHIAZIDE [Concomitant]
     Indication: HYPERTENSION
     Dosage: 1 DOSAGE FORM=100/25(UNITS NOT SPECIFIED)
     Route: 048
     Dates: start: 20060502
  3. EUPRESSYL [Concomitant]
     Indication: HYPERTENSION
     Dosage: 1DF=60 NO UNITS SPECIFIED
     Route: 048
     Dates: start: 20071210
  4. HYZAAR [Concomitant]

REACTIONS (3)
  - ECCHYMOSIS [None]
  - PETECHIAE [None]
  - THROMBOCYTOPENIA [None]
